FAERS Safety Report 24757724 (Version 2)
Quarter: 2025Q4

REPORT INFORMATION
  Report Type: Spontaneous
  Country: US (occurrence: None)
  Receive Date: 20241220
  Receipt Date: 20251030
  Transmission Date: 20260117
  Serious: No
  Sender: UCB
  Company Number: US-UCBSA-2024046120

PATIENT
  Age: 33 Year

DRUGS (1)
  1. BIMZELX [Suspect]
     Active Substance: BIMEKIZUMAB-BKZX
     Indication: Psoriasis
     Dosage: INJECT 2 PENS UNDER THE SKIN ONCE EVERY 4 WEEKS FOR 16 WEEKS (WEEKS 0, 4, 8, 12, AND 16) THEN 2 PENS EVERY 8 WEEKS THEREAFTER

REACTIONS (1)
  - Skin disorder [Unknown]
